FAERS Safety Report 13074787 (Version 3)
Quarter: 2017Q1

REPORT INFORMATION
  Report Type: Report from Study
  Country: US (occurrence: US)
  Receive Date: 20161230
  Receipt Date: 20170330
  Transmission Date: 20170428
  Serious: Yes (Other)
  Sender: FDA-Public Use
  Company Number: US-GILEAD-2016-0247206

PATIENT
  Age: 56 Year
  Sex: Male
  Weight: 83 kg

DRUGS (7)
  1. FUROSEMIDE. [Concomitant]
     Active Substance: FUROSEMIDE
  2. HARVONI [Concomitant]
     Active Substance: LEDIPASVIR\SOFOSBUVIR
  3. SPIRIVA [Concomitant]
     Active Substance: TIOTROPIUM BROMIDE MONOHYDRATE
  4. AMBRISENTAN [Suspect]
     Active Substance: AMBRISENTAN
     Indication: PORTOPULMONARY HYPERTENSION
     Dosage: 5 MG, QD
     Route: 065
     Dates: start: 201611
  5. ADCIRCA [Concomitant]
     Active Substance: TADALAFIL
  6. KEPPRA [Concomitant]
     Active Substance: LEVETIRACETAM
  7. REBETOL [Concomitant]
     Active Substance: RIBAVIRIN

REACTIONS (10)
  - Syncope [Not Recovered/Not Resolved]
  - Vertigo [Unknown]
  - Fall [Not Recovered/Not Resolved]
  - Pneumonia [Unknown]
  - Presyncope [Not Recovered/Not Resolved]
  - Stress [Not Recovered/Not Resolved]
  - Head injury [Not Recovered/Not Resolved]
  - Limb injury [Not Recovered/Not Resolved]
  - Drug ineffective [Unknown]
  - Dyspnoea [Unknown]

NARRATIVE: CASE EVENT DATE: 20161201
